FAERS Safety Report 10974831 (Version 1)
Quarter: 2015Q2

REPORT INFORMATION
  Report Type: Spontaneous
  Country: US (occurrence: US)
  Receive Date: 20150401
  Receipt Date: 20150401
  Transmission Date: 20150821
  Serious: No
  Sender: FDA-Public Use
  Company Number: US-HORIZON-ACT-0019-2014

PATIENT
  Age: 39 Year
  Sex: Male

DRUGS (3)
  1. BACTRIM [Concomitant]
     Active Substance: SULFAMETHOXAZOLE\TRIMETHOPRIM
  2. ACTIMMUNE [Suspect]
     Active Substance: INTERFERON GAMMA-1B
     Indication: CHRONIC GRANULOMATOUS DISEASE
  3. ITRACONAZOLE. [Concomitant]
     Active Substance: ITRACONAZOLE

REACTIONS (6)
  - Pain [Recovering/Resolving]
  - Inappropriate schedule of drug administration [Unknown]
  - Fatigue [Not Recovered/Not Resolved]
  - Depressed mood [Not Recovered/Not Resolved]
  - Pyrexia [Recovering/Resolving]
  - Chills [Recovering/Resolving]
